FAERS Safety Report 8561398-6 (Version None)
Quarter: 2012Q3

REPORT INFORMATION
  Report Type: 
  Country: None (occurrence: None)
  Receive Date: 20120802
  Receipt Date: 20120730
  Transmission Date: 20120928
  Serious: Yes (Other)
  Sender: FDA-Public Use
  Company Number: US-GLAXOSMITHKLINE-A0976979A

PATIENT
  Age: 59 Year
  Sex: Male
  Weight: 126.4 kg

DRUGS (4)
  1. MEDICATION FOR HIGH BLOOD PRESSURE [Concomitant]
  2. DIABETES MEDICATION [Concomitant]
  3. AVODART [Suspect]
     Indication: BENIGN PROSTATIC HYPERPLASIA
     Dosage: .5MG PER DAY
     Route: 048
     Dates: end: 20120401
  4. ANTI-ANXIETY MED- NAME UNKNOWN [Concomitant]

REACTIONS (3)
  - ILL-DEFINED DISORDER [None]
  - FATIGUE [None]
  - PROSTATE CANCER [None]
